FAERS Safety Report 14262960 (Version 2)
Quarter: 2017Q4

REPORT INFORMATION
  Report Type: Spontaneous
  Country: US (occurrence: US)
  Receive Date: 20171208
  Receipt Date: 20171213
  Transmission Date: 20180321
  Serious: No
  Sender: FDA-Public Use
  Company Number: US-GLAXOSMITHKLINE-US2017188334

PATIENT
  Sex: Male

DRUGS (7)
  1. BAYER LOW DOSE ASPIRIN [Concomitant]
  2. GABAPENTIN. [Concomitant]
     Active Substance: GABAPENTIN
  3. ALBUTEROL SULFATE TABLET [Concomitant]
  4. ADVAIR DISKUS [Suspect]
     Active Substance: FLUTICASONE PROPIONATE\SALMETEROL XINAFOATE
     Indication: DYSPNOEA
     Dosage: 1 PUFF(S), UNK
     Route: 055
     Dates: end: 20171111
  5. HYDROCHLOROTHIAZIDE + LOSARTAN [Concomitant]
     Active Substance: HYDROCHLOROTHIAZIDE\LOSARTAN
  6. ATENOLOL. [Concomitant]
     Active Substance: ATENOLOL
  7. FENTANYL TRANSDERMAL SYSTEM [Concomitant]
     Active Substance: FENTANYL

REACTIONS (10)
  - Dysgeusia [Recovered/Resolved]
  - Condition aggravated [Recovered/Resolved]
  - Ageusia [Recovered/Resolved]
  - Dysphagia [Unknown]
  - Tongue erythema [Unknown]
  - Swollen tongue [Recovering/Resolving]
  - Oropharyngeal pain [Recovering/Resolving]
  - Tongue discomfort [Recovered/Resolved]
  - Glossodynia [Unknown]
  - Feeling abnormal [Recovered/Resolved]
